FAERS Safety Report 16639165 (Version 1)
Quarter: 2019Q3

REPORT INFORMATION
  Report Type: Report from Study
  Country: JP (occurrence: JP)
  Receive Date: 20190726
  Receipt Date: 20190726
  Transmission Date: 20191004
  Serious: Yes (Other)
  Sender: FDA-Public Use
  Company Number: JP-PFIZER INC-2018253646

PATIENT
  Age: 75 Year
  Sex: Male

DRUGS (2)
  1. DOCETAXEL. [Suspect]
     Active Substance: DOCETAXEL
     Indication: NON-SMALL CELL LUNG CANCER
     Dosage: 60 MG/M2, CYCLIC (DAY 1, 2ND LINE, EVERY 3 WEEKS)
     Route: 042
  2. RAMUCIRUMAB [Suspect]
     Active Substance: RAMUCIRUMAB
     Indication: NON-SMALL CELL LUNG CANCER
     Dosage: 10 MG/KG, CYCLIC (DAY 1, 2ND LINE, EVERY 3 WEEKS)
     Route: 042

REACTIONS (2)
  - Febrile neutropenia [Unknown]
  - Thrombocytopenia [Unknown]
